FAERS Safety Report 5962825-0 (Version None)
Quarter: 2008Q4

REPORT INFORMATION
  Report Type: 
  Country: None (occurrence: None)
  Receive Date: 20081124
  Receipt Date: 20081120
  Transmission Date: 20090506
  Serious: Yes (Other)
  Sender: FDA-Public Use
  Company Number: JP-BRISTOL-MYERS SQUIBB COMPANY-14400899

PATIENT

DRUGS (2)
  1. KENACORT [Suspect]
     Indication: RETINOPATHY OF PREMATURITY
     Route: 031
  2. FLUORESCITE [Concomitant]
     Route: 042

REACTIONS (1)
  - RETINAL TEAR [None]
